FAERS Safety Report 5826074-9 (Version None)
Quarter: 2008Q3

REPORT INFORMATION
  Report Type: 
  Country: None (occurrence: None)
  Receive Date: 20080729
  Receipt Date: 20080219
  Transmission Date: 20090109
  Serious: Yes (Hospitalization)
  Sender: FDA-Public Use
  Company Number: DE-GENENTECH-256768

PATIENT
  Sex: Male
  Weight: 79 kg

DRUGS (7)
  1. MABTHERA [Suspect]
     Indication: CHRONIC LYMPHOCYTIC LEUKAEMIA
     Dosage: 375 MG/M2, UNK
     Route: 042
     Dates: start: 20070503
  2. CYCLOPHOSPHAMIDE [Suspect]
     Indication: CHRONIC LYMPHOCYTIC LEUKAEMIA
     Dosage: 750 MG/M2, UNK
     Route: 042
  3. DOXORUBICIN HCL [Suspect]
     Indication: CHRONIC LYMPHOCYTIC LEUKAEMIA
     Dosage: 50 MG/M2, UNK
     Route: 042
     Dates: start: 20070504
  4. VINCRISTINE [Suspect]
     Indication: CHRONIC LYMPHOCYTIC LEUKAEMIA
     Dosage: 2 MG/M2, UNK
     Route: 042
     Dates: start: 20070504
  5. PREDNISONE [Suspect]
     Indication: CHRONIC LYMPHOCYTIC LEUKAEMIA
     Dates: start: 20070504
  6. PANTOPRAZOLE SODIUM [Concomitant]
     Indication: DRUG USE FOR UNKNOWN INDICATION
  7. KALINOR BRAUSE [Concomitant]
     Indication: DRUG USE FOR UNKNOWN INDICATION

REACTIONS (2)
  - APLASIA [None]
  - PNEUMOCYSTIS JIROVECI PNEUMONIA [None]
